FAERS Safety Report 9277738 (Version 1)
Quarter: 2013Q2

REPORT INFORMATION
  Report Type: Spontaneous
  Country: US (occurrence: None)
  Receive Date: 20130503
  Receipt Date: 20130503
  Transmission Date: 20140414
  Serious: Yes (Other)
  Sender: FDA-Public Use
  Company Number: None

PATIENT
  Age: 65 Year
  Sex: Female
  Weight: 94.6 kg

DRUGS (2)
  1. VICTOZA [Suspect]
     Indication: DIABETES MELLITUS
     Dates: start: 20120802, end: 20130323
  2. JANUVIA 100 MG [Suspect]
     Indication: DIABETES MELLITUS
     Route: 048
     Dates: start: 20120802, end: 20130323

REACTIONS (1)
  - Pancreatic carcinoma [None]
